FAERS Safety Report 8582149-5 (Version None)
Quarter: 2012Q3

REPORT INFORMATION
  Report Type: 
  Country: None (occurrence: None)
  Receive Date: 20120727
  Receipt Date: 20120711
  Transmission Date: 20120928
  Serious: Yes (Hospitalization)
  Sender: FDA-Public Use
  Company Number: DSA_57386_2012

PATIENT
  Sex: Female
  Weight: 73.5281 kg

DRUGS (11)
  1. MACUGEN [Suspect]
     Indication: DIABETIC RETINAL OEDEMA
     Dosage: (0.3 MG INTRAOCULAR)
     Route: 031
     Dates: start: 20110425, end: 20111005
  2. MICARDIS [Concomitant]
     Dates: start: 20111003
  3. NERISONA [Concomitant]
     Dates: start: 20100908
  4. CONIEL [Concomitant]
     Dates: start: 20080107
  5. XALCOM [Concomitant]
     Dates: start: 20110602
  6. NOVORAPID [Concomitant]
     Dates: start: 20091005
  7. KALIMATE [Concomitant]
     Dates: start: 20090323
  8. HIRUDOID /00723701/ [Concomitant]
     Dates: start: 20100908
  9. AZOPT [Concomitant]
     Dates: start: 20110602
  10. CRESTOR [Concomitant]
     Dates: start: 20111207
  11. FAMOTIDINE [Concomitant]
     Dates: start: 20061009

REACTIONS (2)
  - GLAUCOMA [None]
  - CONDITION AGGRAVATED [None]
